FAERS Safety Report 23666013 (Version 1)
Quarter: 2024Q1

REPORT INFORMATION
  Report Type: Report from Study
  Country: EG (occurrence: EG)
  Receive Date: 20240323
  Receipt Date: 20240323
  Transmission Date: 20240410
  Serious: No
  Sender: FDA-Public Use
  Company Number: EG-SANDOZ-SDZ2024EG030859

PATIENT
  Age: 4 Year
  Sex: Female
  Weight: 15 kg

DRUGS (4)
  1. OMNITROPE [Suspect]
     Active Substance: SOMATROPIN
     Indication: Product used for unknown indication
     Dosage: 0.4 MG, QD
     Route: 058
     Dates: start: 20220529
  2. OMNITROPE [Suspect]
     Active Substance: SOMATROPIN
     Dosage: 0.6 MG, QD
     Route: 058
  3. CALCIUM [Concomitant]
     Active Substance: CALCIUM
     Indication: Nutritional supplementation
     Dosage: STOPPED AFTER FEW MONTHS
     Route: 065
  4. IRON [Concomitant]
     Active Substance: IRON
     Indication: Nutritional supplementation
     Dosage: STOPPED AFTER FEW MONTHS
     Route: 065

REACTIONS (11)
  - Injection site haemorrhage [Unknown]
  - Drug ineffective [Unknown]
  - Therapy interrupted [Unknown]
  - Off label use [Unknown]
  - Product storage error [Unknown]
  - Product availability issue [Unknown]
  - Wrong device used [Unknown]
  - Wrong technique in product usage process [Unknown]
  - Wrong technique in device usage process [Unknown]
  - Device leakage [Unknown]
  - Device mechanical issue [Unknown]

NARRATIVE: CASE EVENT DATE: 20220529
